FAERS Safety Report 9459504 (Version 4)
Quarter: 2014Q1

REPORT INFORMATION
  Report Type: Spontaneous
  Country: US (occurrence: US)
  Receive Date: 20130815
  Receipt Date: 20140307
  Transmission Date: 20141002
  Serious: No
  Sender: FDA-Public Use
  Company Number: US-PFIZER INC-2013237112

PATIENT
  Age: 53 Year
  Sex: Female
  Weight: 114 kg

DRUGS (11)
  1. LYRICA [Suspect]
     Indication: FIBROMYALGIA
     Dosage: 100 MG, 2X/DAY
     Route: 048
     Dates: start: 201301, end: 2013
  2. LYRICA [Suspect]
     Dosage: 200 MG, 2X/DAY
     Route: 048
     Dates: start: 2013, end: 20131206
  3. GABAPENTIN [Suspect]
     Indication: FIBROMYALGIA
     Dosage: UNK
  4. EFFEXOR [Concomitant]
     Dosage: UNK
  5. ARMOUR THYROID [Concomitant]
     Indication: THYROID DISORDER
     Dosage: THREE TABLETS OF 60 MG DAILY
     Route: 048
  6. ESTRACE [Concomitant]
     Dosage: UNK
  7. HYDROCODONE/ACETAMINOPHEN [Concomitant]
     Dosage: UNK
  8. CLONAZEPAM [Concomitant]
     Dosage: UNK
  9. MINOCYCLINE [Concomitant]
     Dosage: UNK
  10. ROBAXIN [Concomitant]
     Dosage: UNK
  11. ADVAIR DISKUS [Concomitant]
     Dosage: UNK

REACTIONS (3)
  - Drug ineffective [Unknown]
  - Pain [Unknown]
  - Product lot number issue [Unknown]
